FAERS Safety Report 7876091-2 (Version None)
Quarter: 2011Q4

REPORT INFORMATION
  Report Type: 
  Country: None (occurrence: None)
  Receive Date: 20111031
  Receipt Date: 20111025
  Transmission Date: 20120403
  Serious: Yes (Other)
  Sender: FDA-Public Use
  Company Number: US-ROCHE-1007151

PATIENT
  Sex: Female

DRUGS (4)
  1. BUTRANS [Concomitant]
  2. PERCOCET [Concomitant]
  3. TIZANIDINE HCL [Concomitant]
  4. KLONOPIN [Suspect]
     Indication: PRODUCT USED FOR UNKNOWN INDICATION
     Route: 065

REACTIONS (3)
  - SLEEP APNOEA SYNDROME [None]
  - FLUID RETENTION [None]
  - OEDEMA [None]
